FAERS Safety Report 8427264-1 (Version None)
Quarter: 2012Q2

REPORT INFORMATION
  Report Type: 
  Country: None (occurrence: None)
  Receive Date: 20120611
  Receipt Date: 20120604
  Transmission Date: 20120825
  Serious: Yes (Other)
  Sender: FDA-Public Use
  Company Number: US-GLAXOSMITHKLINE-A0980059A

PATIENT
  Age: 33 Year
  Sex: Male

DRUGS (2)
  1. ABILIFY [Concomitant]
  2. WELLBUTRIN [Suspect]
     Indication: DEPRESSION
     Dosage: 150MG PER DAY
     Route: 048
     Dates: start: 20120101

REACTIONS (1)
  - LIVER FUNCTION TEST ABNORMAL [None]
